FAERS Safety Report 7815587-6 (Version None)
Quarter: 2011Q4

REPORT INFORMATION
  Report Type: 
  Country: None (occurrence: None)
  Receive Date: 20111014
  Receipt Date: 20111004
  Transmission Date: 20120403
  Serious: Yes (Hospitalization)
  Sender: FDA-Public Use
  Company Number: US-ELI_LILLY_AND_COMPANY-US201110000967

PATIENT
  Sex: Male
  Weight: 80.1 kg

DRUGS (13)
  1. PROCHLORPERAZINE [Concomitant]
     Dosage: 10 MG, PRN EVERY 6 HOURS
  2. GEMCITABINE HYDROCHLORIDE [Suspect]
     Indication: NON-SMALL CELL LUNG CANCER STAGE IV
     Dosage: 2375 MG, EVERY 21 DAYS/CYCLE
     Route: 042
     Dates: start: 20110927
  3. CISPLATIN [Suspect]
     Indication: NON-SMALL CELL LUNG CANCER STAGE IV
     Dosage: 140 MG, EVERY 21 DAYS/CYCLE
     Route: 042
     Dates: start: 20110927
  4. LOSARTAN POTASSIUM [Concomitant]
     Dosage: 50 MG, QD
  5. ZOLPIDEM [Concomitant]
     Dosage: 10 MG, PRN
  6. NIFEDIPINE [Concomitant]
     Dosage: 30 MG, QD
  7. PROPRANOLOL [Concomitant]
     Dosage: 80 MG, BID
  8. KLOR-CON [Concomitant]
     Dosage: 20 MEQ, QD
  9. PROTONIX [Concomitant]
     Dosage: 40 MG, QD
  10. ZOFRAN [Concomitant]
     Dosage: 8 MG, PRN EVERY 8 HOURS
  11. GEMCITABINE HYDROCHLORIDE [Suspect]
     Dosage: 950 MG/M2, EVERY 21 DAYS/CYCLE
     Dates: start: 20111004
  12. ENOXAPARIN [Concomitant]
     Dosage: 120 MG, QD
  13. FUROSEMIDE [Concomitant]
     Dosage: 20 MG, BID

REACTIONS (2)
  - DEHYDRATION [None]
  - ASTHENIA [None]
